FAERS Safety Report 16353958 (Version 4)
Quarter: 2019Q2

REPORT INFORMATION
  Report Type: Spontaneous
  Country: GB (occurrence: GB)
  Receive Date: 20190524
  Receipt Date: 20190530
  Transmission Date: 20190711
  Serious: Yes (Other)
  Sender: FDA-Public Use
  Company Number: PHHY2019GB116114

PATIENT
  Age: 28 Year
  Sex: Female

DRUGS (5)
  1. DALTEPARIN [Suspect]
     Active Substance: DALTEPARIN
     Indication: THYMOMA MALIGNANT
     Dosage: 5 CYCLES
     Route: 065
  2. PREDNISOLONE. [Suspect]
     Active Substance: PREDNISOLONE
     Indication: THYMOMA MALIGNANT
     Dosage: FIVE CYCLES
     Route: 065
  3. ETOPOSIDE. [Suspect]
     Active Substance: ETOPOSIDE
     Indication: THYMOMA MALIGNANT
     Route: 065
  4. EPIRUBICIN [Suspect]
     Active Substance: EPIRUBICIN
     Indication: THYMOMA MALIGNANT
     Route: 065
  5. CISPLATIN. [Suspect]
     Active Substance: CISPLATIN
     Indication: THYMOMA MALIGNANT
     Route: 065

REACTIONS (6)
  - Thymoma malignant [Unknown]
  - Product use in unapproved indication [Unknown]
  - Normal newborn [Unknown]
  - Malignant neoplasm progression [Unknown]
  - Placenta praevia [Unknown]
  - Maternal exposure during pregnancy [Unknown]
